FAERS Safety Report 13544993 (Version 1)
Quarter: 2017Q2

REPORT INFORMATION
  Report Type: Spontaneous
  Country: US (occurrence: US)
  Receive Date: 20170515
  Receipt Date: 20170515
  Transmission Date: 20170830
  Serious: Yes (Life-Threatening, Disabling, Other)
  Sender: FDA-Public Use
  Company Number: None

PATIENT
  Age: 61 Year
  Sex: Female
  Weight: 65.83 kg

DRUGS (7)
  1. PREMARIN [Concomitant]
     Active Substance: ESTROGENS, CONJUGATED
  2. TRIAMTERENE. [Concomitant]
     Active Substance: TRIAMTERENE
  3. HCTZ [Concomitant]
     Active Substance: HYDROCHLOROTHIAZIDE
  4. PREMARIN [Suspect]
     Active Substance: ESTROGENS, CONJUGATED
     Indication: PRODUCT USED FOR UNKNOWN INDICATION
     Dosage: DOSE - 1/2 GRAM EXTERNAL OPENING + INSIDE?FREQUENCY - 21 DAYS AN OFF FOR 7 DAYS?REFILL 1-5-17
     Route: 067
     Dates: start: 20161211
  5. VITAMIN E [Concomitant]
     Active Substance: .ALPHA.-TOCOPHEROL
  6. IPUB 800 [Concomitant]
  7. VITAMIN D [Concomitant]
     Active Substance: CHOLECALCIFEROL

REACTIONS (10)
  - Alopecia [None]
  - Tendon disorder [None]
  - Drug dispensing error [None]
  - Dry skin [None]
  - Diarrhoea [None]
  - Incorrect drug dosage form administered [None]
  - Vomiting [None]
  - Headache [None]
  - Drug prescribing error [None]
  - Hot flush [None]
